FAERS Safety Report 10719449 (Version 1)
Quarter: 2015Q1

REPORT INFORMATION
  Report Type: Spontaneous
  Country: US (occurrence: US)
  Receive Date: 20150119
  Receipt Date: 20150119
  Transmission Date: 20150721
  Serious: No
  Sender: FDA-Public Use
  Company Number: US-UNITED THERAPEUTICS-UNT-2014-010311

PATIENT
  Age: 64 Year
  Sex: Female
  Weight: 82.54 kg

DRUGS (4)
  1. ORENITRAM [Suspect]
     Active Substance: TREPROSTINIL
     Dosage: 1.625 MG, TID
     Route: 048
     Dates: start: 20141216
  2. REVATIO [Concomitant]
     Active Substance: SILDENAFIL CITRATE
     Indication: PRODUCT USED FOR UNKNOWN INDICATION
  3. ORENITRAM [Suspect]
     Active Substance: TREPROSTINIL
     Indication: PULMONARY ARTERIAL HYPERTENSION
     Dosage: 1.625 MG, TID
     Route: 048
     Dates: start: 20141113
  4. OXYGEN. [Concomitant]
     Active Substance: OXYGEN
     Indication: PRODUCT USED FOR UNKNOWN INDICATION

REACTIONS (12)
  - Constipation [Unknown]
  - Nasopharyngitis [Unknown]
  - Nausea [Unknown]
  - Fatigue [Unknown]
  - Confusional state [Unknown]
  - Somnolence [Unknown]
  - Vomiting [Unknown]
  - Cough [Recovering/Resolving]
  - Incorrect dose administered [Unknown]
  - Diarrhoea [Unknown]
  - Ocular discomfort [Unknown]
  - Lethargy [Unknown]

NARRATIVE: CASE EVENT DATE: 2014
